FAERS Safety Report 21267031 (Version 1)
Quarter: 2022Q3

REPORT INFORMATION
  Report Type: Spontaneous
  Country: US (occurrence: None)
  Receive Date: 20220826
  Receipt Date: 20220826
  Transmission Date: 20221026
  Serious: Yes (Hospitalization)
  Sender: FDA-Public Use
  Company Number: None

PATIENT
  Age: 59 Year
  Sex: Male
  Weight: 172.37 kg

DRUGS (14)
  1. IMATINIB [Suspect]
     Active Substance: IMATINIB
     Indication: Skin cancer
     Dosage: FREQUENCY : DAILY;?
     Route: 048
  2. ALBUTEROL SULFATE [Concomitant]
     Active Substance: ALBUTEROL SULFATE
  3. ASPIRIN [Concomitant]
     Active Substance: ASPIRIN
  4. CLONIDINE HYDROCHLORIDE [Concomitant]
     Active Substance: CLONIDINE HYDROCHLORIDE
  5. FUROSEMIDE [Concomitant]
     Active Substance: FUROSEMIDE
  6. GLIPIZIDE [Concomitant]
     Active Substance: GLIPIZIDE
  7. hydrALAZINE HCI [Concomitant]
  8. lpratropium-Albuterol Inhalation [Concomitant]
  9. Keppra Morphine Sulfate [Concomitant]
  10. Pioglitazone HCI [Concomitant]
  11. POTASSIUM [Concomitant]
     Active Substance: POTASSIUM
  12. Chloride Crys ER [Concomitant]
  13. SPIRONOLACTONE [Concomitant]
     Active Substance: SPIRONOLACTONE
  14. TRADJENTA [Concomitant]
     Active Substance: LINAGLIPTIN

REACTIONS (1)
  - Hospitalisation [None]
